FAERS Safety Report 5427117-7 (Version None)
Quarter: 2007Q3

REPORT INFORMATION
  Report Type: 
  Country: None (occurrence: None)
  Receive Date: 20070824
  Receipt Date: 20070824
  Transmission Date: 20080115
  Serious: Yes (Hospitalization)
  Sender: FDA-Public Use
  Company Number: None

PATIENT
  Age: 57 Year
  Sex: Male
  Weight: 99.7913 kg

DRUGS (8)
  1. NATALIZUMAB 300MG BIOGEN/ELAN [Suspect]
     Indication: MULTIPLE SCLEROSIS
     Dosage: 300MG ONCE IV DRIP
     Route: 041
     Dates: start: 20070201, end: 20070201
  2. AMANTADINE HCL [Concomitant]
  3. MULTI-VITAMIN [Concomitant]
  4. ASPIRIN [Concomitant]
  5. DARVOCET [Concomitant]
  6. FLEXERIL [Concomitant]
  7. ACTONE [Concomitant]
  8. CALCIUM/VIT D [Concomitant]

REACTIONS (10)
  - ASTHENIA [None]
  - BLOOD PRESSURE DECREASED [None]
  - CHEST DISCOMFORT [None]
  - DYSPNOEA [None]
  - HYPERHIDROSIS [None]
  - PARAESTHESIA [None]
  - RASH GENERALISED [None]
  - RASH MACULO-PAPULAR [None]
  - TACHYCARDIA [None]
  - URTICARIA [None]
